FAERS Safety Report 8534139-6 (Version None)
Quarter: 2012Q3

REPORT INFORMATION
  Report Type: 
  Country: None (occurrence: None)
  Receive Date: 20120724
  Receipt Date: 20120719
  Transmission Date: 20120928
  Serious: Yes (Death)
  Sender: FDA-Public Use
  Company Number: CN-ASTRAZENECA-2012SE51434

PATIENT
  Age: 17003 Day
  Sex: Male
  Weight: 81 kg

DRUGS (1)
  1. BUDESONIDE AND FORMOTEROL [Suspect]
     Indication: ASTHMA
     Dosage: 160/4.5 MCG BID
     Route: 055
     Dates: start: 20090818

REACTIONS (1)
  - CARDIAC DEATH [None]
